FAERS Safety Report 8278302-0 (Version None)
Quarter: 2012Q2

REPORT INFORMATION
  Report Type: 
  Country: None (occurrence: None)
  Receive Date: 20120412
  Receipt Date: 20120202
  Transmission Date: 20120825
  Serious: No
  Sender: FDA-Public Use
  Company Number: US-ASTRAZENECA-2012SE07583

PATIENT
  Age: 82 Year
  Sex: Female

DRUGS (1)
  1. NEXIUM [Suspect]
     Indication: CROHN'S DISEASE
     Route: 048

REACTIONS (1)
  - MACULAR DEGENERATION [None]
